FAERS Safety Report 19029801 (Version 2)
Quarter: 2021Q2

REPORT INFORMATION
  Report Type: Spontaneous
  Country: US (occurrence: US)
  Receive Date: 20210319
  Receipt Date: 20210406
  Transmission Date: 20210717
  Serious: Yes (Death, Hospitalization, Other)
  Sender: FDA-Public Use
  Company Number: US-009507513-2103USA003964

PATIENT
  Age: 81 Year
  Sex: Female

DRUGS (7)
  1. NAMENDA [Concomitant]
     Active Substance: MEMANTINE HYDROCHLORIDE
  2. EFFEXOR [Concomitant]
     Active Substance: VENLAFAXINE HYDROCHLORIDE
  3. ASPIRIN. [Concomitant]
     Active Substance: ASPIRIN
  4. KEYTRUDA [Suspect]
     Active Substance: PEMBROLIZUMAB
     Indication: NON-SMALL CELL LUNG CANCER
     Dosage: FRIST INFUSION; 200 MG EVERY 3 WEEKS
     Route: 042
     Dates: start: 20210217
  5. AMLODIPINE [Concomitant]
     Active Substance: AMLODIPINE BESYLATE
  6. ARICEPT [Concomitant]
     Active Substance: DONEPEZIL HYDROCHLORIDE
  7. ZOCOR [Concomitant]
     Active Substance: SIMVASTATIN

REACTIONS (10)
  - Incontinence [Unknown]
  - Oxygen saturation decreased [Unknown]
  - Gait disturbance [Unknown]
  - Eating disorder [Unknown]
  - Asthenia [Unknown]
  - Loss of consciousness [Unknown]
  - Exophthalmos [Unknown]
  - Non-small cell lung cancer [Fatal]
  - Pneumonitis [Fatal]
  - Depressed level of consciousness [Unknown]

NARRATIVE: CASE EVENT DATE: 202102
